FAERS Safety Report 10191797 (Version 1)
Quarter: 2014Q2

REPORT INFORMATION
  Report Type: Spontaneous
  Country: US (occurrence: None)
  Receive Date: 20140522
  Receipt Date: 20140522
  Transmission Date: 20141212
  Serious: No
  Sender: FDA-Public Use
  Company Number: None

PATIENT
  Age: 79 Year
  Sex: Female

DRUGS (1)
  1. AFINITOR 10 MG NOVARTIS PHARMACEUTICALS CORP [Suspect]
     Indication: BREAST CANCER
     Route: 048
     Dates: start: 20140429, end: 20140512

REACTIONS (4)
  - Oral pain [None]
  - Nausea [None]
  - Headache [None]
  - Influenza like illness [None]
